FAERS Safety Report 9663632 (Version 1)
Quarter: 2013Q4

REPORT INFORMATION
  Report Type: Spontaneous
  Country: US (occurrence: US)
  Receive Date: 20131101
  Receipt Date: 20131101
  Transmission Date: 20140711
  Serious: Yes (Other)
  Sender: FDA-Public Use
  Company Number: US-PFIZER INC-2013309935

PATIENT
  Age: 52 Year
  Sex: Female
  Weight: 90.7 kg

DRUGS (7)
  1. LIPITOR [Suspect]
     Indication: BLOOD CHOLESTEROL INCREASED
     Dosage: SPLITTING A 20 MG TABLET DAILY
  2. SYNTHROID [Suspect]
     Indication: THYROID DISORDER
     Dosage: 50 UG, 2X/DAY
  3. SYNTHROID [Suspect]
     Dosage: 50 UG, 2X/DAY
  4. SYNTHROID [Suspect]
     Indication: THYROID DISORDER
     Dosage: 75 UG, UNK
  5. NORVASC [Concomitant]
     Indication: HYPERTENSION
     Dosage: 10 MG, UNK
  6. ARTHROTEC [Concomitant]
     Indication: ARTHRITIS
     Dosage: 50 MG/ 200 MCG DAILY
  7. ASPIRIN [Concomitant]
     Dosage: UNK

REACTIONS (4)
  - Urinary tract infection [Recovered/Resolved]
  - Pruritus [Unknown]
  - Rash [Unknown]
  - Drug intolerance [Unknown]
